FAERS Safety Report 6490362-6 (Version None)
Quarter: 2009Q4

REPORT INFORMATION
  Report Type: 
  Country: None (occurrence: None)
  Receive Date: 20091124
  Receipt Date: 20090908
  Transmission Date: 20100525
  Serious: Yes (Other)
  Sender: FDA-Public Use
  Company Number: SPV1-2009-01806

PATIENT
  Age: 25 Year
  Sex: Female
  Weight: 96.6 kg

DRUGS (7)
  1. CARBATROL [Suspect]
     Indication: CONVULSION
     Dosage: 200 MG, 1X/DAY;QD, ORAL
     Route: 048
     Dates: start: 20090828, end: 20090907
  2. DILTIAZEM ER (DILTIAZEM HYDROCHLORIDE) TABLET [Concomitant]
  3. PROVIGIL (MODAFINIL) CAPSULE [Concomitant]
  4. ALPRAZOLAM [Concomitant]
  5. EFFEXOR XR [Concomitant]
  6. ZEGESIC (MEFENAMIC ACID) TABLET [Concomitant]
  7. NEXIUM /01479302/ (ESOMEPRAZOLE MAGNESIUM) CAPSULE [Concomitant]

REACTIONS (2)
  - CONFUSIONAL STATE [None]
  - SUICIDAL IDEATION [None]
